FAERS Safety Report 21956783 (Version 3)
Quarter: 2023Q1

REPORT INFORMATION
  Report Type: Report from Study
  Country: US (occurrence: US)
  Receive Date: 20230206
  Receipt Date: 20230327
  Transmission Date: 20230418
  Serious: Yes (Other)
  Sender: FDA-Public Use
  Company Number: US-ASTELLAS-2023US003535

PATIENT
  Age: 27 Year
  Sex: Male

DRUGS (30)
  1. GILTERITINIB [Suspect]
     Active Substance: GILTERITINIB
     Indication: Acute myeloid leukaemia
     Route: 048
     Dates: start: 20220523
  2. CYTARABINE [Suspect]
     Active Substance: CYTARABINE
     Indication: Acute myeloid leukaemia
     Dosage: 100 MG/M2, CYCLIC (TOTAL DOSE 200 MG)
     Route: 042
     Dates: start: 20220514
  3. DAUNORUBICIN [Suspect]
     Active Substance: DAUNORUBICIN
     Indication: Acute myeloid leukaemia
     Dosage: 90 MG/M2, CYCLIC (TOTAL DOSE 180 MG)
     Route: 042
     Dates: start: 20220514
  4. MYCAMINE [Suspect]
     Active Substance: MICAFUNGIN SODIUM
     Indication: Product used for unknown indication
     Dosage: 100 MG, ONCE DAILY (100 MG IN 0.9% NACL 100ML, 100 MG)
     Route: 042
  5. MYCAMINE [Suspect]
     Active Substance: MICAFUNGIN SODIUM
     Dosage: 150 MG, ONCE DAILY (100 MG IN 0.9% NACL 100ML, 100 MG)
     Route: 042
     Dates: start: 20220606, end: 20220606
  6. MYCAMINE [Suspect]
     Active Substance: MICAFUNGIN SODIUM
     Dosage: 100 MG, ONCE DAILY (100 MG IN 0.9% NACL 100ML, 100 MG)
     Route: 042
     Dates: start: 20220607, end: 20220607
  7. MYCAMINE [Suspect]
     Active Substance: MICAFUNGIN SODIUM
     Dosage: 100 MG, ONCE DAILY (100 MG IN 0.9% NACL 100ML, 100 MG)
     Route: 042
     Dates: start: 20220608, end: 20220608
  8. ZOSYN [Suspect]
     Active Substance: PIPERACILLIN SODIUM\TAZOBACTAM SODIUM
     Indication: Product used for unknown indication
     Dosage: 4.5 G, EVERY 8 HOURS (4.5G IN 0.9% NACL 100ML, EXTENDED 4 HOUR INFUSION)
     Route: 042
  9. ZOSYN [Suspect]
     Active Substance: PIPERACILLIN SODIUM\TAZOBACTAM SODIUM
     Dosage: 4.5 G, EVERY 8 HOURS (4.5G IN 0.9% NACL 100ML, EXTENDED 4 HOUR INFUSION)
     Route: 042
     Dates: start: 20220605, end: 20220605
  10. ZOSYN [Suspect]
     Active Substance: PIPERACILLIN SODIUM\TAZOBACTAM SODIUM
     Dosage: 4.5 G, EVERY 8 HOURS (4.5G IN 0.9% NACL 100ML, EXTENDED 4 HOUR INFUSION)
     Route: 042
     Dates: start: 20220606, end: 20220606
  11. ZOSYN [Suspect]
     Active Substance: PIPERACILLIN SODIUM\TAZOBACTAM SODIUM
     Dosage: 4.5 G, EVERY 8 HOURS (4.5G IN 0.9% NACL 100ML, EXTENDED 4 HOUR INFUSION)
     Route: 042
     Dates: start: 20220607, end: 20220607
  12. ZOSYN [Suspect]
     Active Substance: PIPERACILLIN SODIUM\TAZOBACTAM SODIUM
     Dosage: 4.5 G, EVERY 8 HOURS (4.5G IN 0.9% NACL 100ML, EXTENDED 4 HOUR INFUSION)
     Route: 042
     Dates: start: 20220608, end: 20220608
  13. CEFEPIME [Suspect]
     Active Substance: CEFEPIME HYDROCHLORIDE
     Indication: Product used for unknown indication
     Dosage: UNK UNK, UNKNOWN FREQ.
     Route: 065
  14. ZOVIRAX [Suspect]
     Active Substance: ACYCLOVIR
     Indication: Product used for unknown indication
     Dosage: 360 MG, EVERY 12 HOURS (360 MG IN DEXTROSE 5 % 100 ML BAG 5MG/KG)
     Route: 042
     Dates: start: 20220606, end: 20220606
  15. ZOVIRAX [Suspect]
     Active Substance: ACYCLOVIR
     Dosage: 360 MG, EVERY 12 HOURS (360 MG IN DEXTROSE 5 % 100 ML BAG 5MG/KG)
     Route: 042
     Dates: start: 20220607, end: 20220607
  16. ZOVIRAX [Suspect]
     Active Substance: ACYCLOVIR
     Dosage: 360 MG, EVERY 12 HOURS (360 MG IN DEXTROSE 5 % 100 ML BAG 5MG/KG)
     Route: 042
     Dates: start: 20220608, end: 20220608
  17. TUMS [Concomitant]
     Active Substance: CALCIUM CARBONATE
     Indication: Product used for unknown indication
     Dosage: UNK UNK, UNKNOWN FREQ.
     Route: 065
     Dates: start: 20220524, end: 20220524
  18. FAMOTIDINE [Concomitant]
     Active Substance: FAMOTIDINE
     Indication: Product used for unknown indication
     Dosage: UNK UNK, UNKNOWN FREQ.
     Route: 065
     Dates: start: 20220522, end: 20220522
  19. LIDOCAINE VISCOUS [Concomitant]
     Active Substance: LIDOCAINE HYDROCHLORIDE
     Indication: Product used for unknown indication
     Route: 065
     Dates: start: 20220522, end: 20220522
  20. MELATONIN [Concomitant]
     Active Substance: MELATONIN
     Indication: Product used for unknown indication
     Dosage: UNK UNK, UNKNOWN FREQ.
     Route: 065
     Dates: start: 20220528, end: 20220528
  21. OXYMETAZOLINE [Concomitant]
     Active Substance: OXYMETAZOLINE
     Indication: Product used for unknown indication
     Dosage: UNK UNK, UNKNOWN FREQ.
     Route: 065
     Dates: start: 20220516, end: 20220516
  22. POTASSIUM CHLORIDE [Concomitant]
     Active Substance: POTASSIUM CHLORIDE
     Indication: Product used for unknown indication
     Dosage: UNK UNK, UNKNOWN FREQ.
     Route: 065
     Dates: start: 20220528, end: 20220530
  23. DILAUDID [Concomitant]
     Active Substance: HYDROMORPHONE HYDROCHLORIDE
     Indication: Product used for unknown indication
     Dosage: 0.5 MG, AS NEEDED ( 2 TIMES GIVEN)
     Route: 042
     Dates: start: 20220605, end: 20220605
  24. DILAUDID [Concomitant]
     Active Substance: HYDROMORPHONE HYDROCHLORIDE
     Dosage: 0.5 MG, AS NEEDED ( 2 TIMES GIVEN)
     Route: 042
     Dates: start: 20220606, end: 20220606
  25. TYLENOL [Concomitant]
     Active Substance: ACETAMINOPHEN
     Indication: Product used for unknown indication
     Route: 048
     Dates: start: 20220605, end: 20220605
  26. TYLENOL [Concomitant]
     Active Substance: ACETAMINOPHEN
     Route: 048
     Dates: start: 20220606, end: 20220606
  27. IMODIUM [Concomitant]
     Active Substance: LOPERAMIDE HYDROCHLORIDE
     Indication: Product used for unknown indication
     Dosage: 2 MG, 4 TIMES DAILY AS NEEDED
     Route: 048
     Dates: start: 20220605, end: 20220605
  28. IMODIUM [Concomitant]
     Active Substance: LOPERAMIDE HYDROCHLORIDE
     Dosage: 2 MG, 4 TIMES DAILY AS NEEDED
     Route: 048
     Dates: start: 20220606, end: 20220606
  29. IMODIUM [Concomitant]
     Active Substance: LOPERAMIDE HYDROCHLORIDE
     Dosage: 2 MG, 4 TIMES DAILY AS NEEDED
     Route: 048
     Dates: start: 20220607, end: 20220607
  30. IMODIUM [Concomitant]
     Active Substance: LOPERAMIDE HYDROCHLORIDE
     Dosage: 2 MG, 4 TIMES DAILY AS NEEDED
     Route: 048
     Dates: start: 20220608, end: 20220608

REACTIONS (1)
  - Drug-induced liver injury [Recovered/Resolved]

NARRATIVE: CASE EVENT DATE: 20220606
